FAERS Safety Report 24654113 (Version 2)
Quarter: 2024Q4

REPORT INFORMATION
  Report Type: Spontaneous
  Country: ES (occurrence: ES)
  Receive Date: 20241122
  Receipt Date: 20241129
  Transmission Date: 20250115
  Serious: Yes (Life-Threatening, Hospitalization, Other)
  Sender: GLAXOSMITHKLINE
  Company Number: None

PATIENT

DRUGS (4)
  1. ALBUTEROL [Suspect]
     Active Substance: ALBUTEROL
     Indication: Fatigue
     Dosage: UNK
     Route: 065
  2. ZOLGENSMA [Suspect]
     Active Substance: ONASEMNOGENE ABEPARVOVEC-XIOI
     Indication: Spinal muscular atrophy
     Dosage: 3.9 X 1014 VG, ONCE/SINGLE
     Route: 042
     Dates: start: 20231204, end: 20231204
  3. VITAMIN D NOS [Concomitant]
     Active Substance: CHOLECALCIFEROL\ERGOCALCIFEROL
     Indication: Prophylaxis
     Dosage: 400 IU, QD
     Route: 065
     Dates: start: 20231107
  4. PREDNISOLONE [Concomitant]
     Active Substance: PREDNISOLONE
     Indication: Product used for unknown indication
     Dosage: UNK, (1MG/KG/DOSE (3.6MG) (DUE TO GT PROTOCOL (DESCENDING DOSES))
     Route: 048
     Dates: start: 20231203

REACTIONS (14)
  - Aspiration [Not Recovered/Not Resolved]
  - Respiratory failure [Not Recovered/Not Resolved]
  - Drug ineffective [Not Recovered/Not Resolved]
  - Rhinovirus infection [Unknown]
  - Secretion discharge [Unknown]
  - Acute respiratory failure [Unknown]
  - Pyrexia [Unknown]
  - Platelet count decreased [Unknown]
  - Hypertransaminasaemia [Recovered/Resolved]
  - Troponin I increased [Recovered/Resolved]
  - Hypercapnia [Recovered/Resolved]
  - Coronavirus infection [Unknown]
  - Vomiting [Unknown]
  - Therapy non-responder [Unknown]

NARRATIVE: CASE EVENT DATE: 20231201
